FAERS Safety Report 8026579 (Version 3)
Quarter: 2012Q4

REPORT INFORMATION
  Report Type: 
  Country: US (occurrence: US)
  Receive Date: 20110708
  Receipt Date: 20120927
  Transmission Date: 20130627
  Serious: Yes (Other)
  Sender: FDA-Public Use
  Company Number: US-ROCHE-787580

PATIENT
  Sex: Male
  Weight: 88.53 kg

DRUGS (1)
  1. ACCUTANE [Suspect]
     Indication: ACNE
     Dosage: start date: 1994 or 1995
     Route: 065

REACTIONS (6)
  - Large intestine polyp [Unknown]
  - Irritable bowel syndrome [Unknown]
  - Rectal haemorrhage [Unknown]
  - Injury [Unknown]
  - Diverticulitis [Unknown]
  - Anxiety [Unknown]
